FAERS Safety Report 8825566 (Version 1)
Quarter: 2012Q4

REPORT INFORMATION
  Report Type: 
  Country: US (occurrence: US)
  Receive Date: 20121004
  Receipt Date: 20121004
  Transmission Date: 20130627
  Serious: No
  Sender: FDA-Public Use
  Company Number: US-009507513-1210USA001996

PATIENT
  Age: 9 Year
  Sex: Male
  Weight: 27.21 kg

DRUGS (3)
  1. MIRALAX [Suspect]
     Indication: CONSTIPATION
     Dosage: UNK, Unknown
     Route: 048
     Dates: start: 20120915
  2. MIRALAX [Suspect]
     Indication: MEDICAL OBSERVATION
  3. DULCOLAX [Suspect]

REACTIONS (6)
  - Nausea [Not Recovered/Not Resolved]
  - Drug ineffective [Unknown]
  - Overdose [Unknown]
  - Incorrect drug administration rate [Unknown]
  - Drug administered to patient of inappropriate age [Unknown]
  - Off label use [Unknown]
